FAERS Safety Report 18820179 (Version 2)
Quarter: 2021Q4

REPORT INFORMATION
  Report Type: Spontaneous
  Country: US (occurrence: US)
  Receive Date: 20210202
  Receipt Date: 20211011
  Transmission Date: 20220303
  Serious: Yes (Hospitalization, Other)
  Sender: FDA-Public Use
  Company Number: US-CIPLA LTD.-2021US00306

PATIENT

DRUGS (13)
  1. ALENDRONATE [Interacting]
     Active Substance: ALENDRONATE SODIUM
     Indication: Bone density decreased
     Dosage: 70 MILLIGRAM, ONCE A WEEK
     Route: 065
     Dates: start: 20201228
  2. CALCIUM [Interacting]
     Active Substance: CALCIUM
     Indication: Mineral supplementation
     Dosage: 500 MILLIGRAM, BID, SINCE 9 YEARS
     Route: 065
  3. NIFEDIPINE [Concomitant]
     Active Substance: NIFEDIPINE
     Indication: Blood pressure abnormal
     Dosage: UNK, QD, ONCE A DAY (9 YEARS)
     Route: 065
  4. BYSTOLIC [Concomitant]
     Active Substance: NEBIVOLOL HYDROCHLORIDE
     Indication: Blood pressure abnormal
     Dosage: UNK, QD ONCE A DAY (9 YEARS)
     Route: 065
  5. BENAZEPRIL [Concomitant]
     Active Substance: BENAZEPRIL HYDROCHLORIDE
     Indication: Blood pressure abnormal
     Dosage: UNK, QD ONCE A DAY (9 YEARS)
     Route: 065
  6. METFORMIN [Concomitant]
     Active Substance: METFORMIN HYDROCHLORIDE
     Indication: Diabetes mellitus
     Dosage: UNK, BID (TWICE A DAY, 3 YEARS)
     Route: 065
  7. FEMARA [Concomitant]
     Active Substance: LETROZOLE
     Indication: Breast cancer
     Dosage: 2.5 MILLIGRAM, QD, ONCE A DAY
     Route: 065
  8. VITAMIN D NOS [Concomitant]
     Active Substance: VITAMIN D NOS
     Indication: Vitamin supplementation
     Dosage: UNK, QD (ONCE A DAY, 3 YEARS)
     Route: 065
  9. VITAMIN C [Concomitant]
     Active Substance: ASCORBIC ACID
     Indication: Vitamin supplementation
     Dosage: UNK, QD  (ONCE A DAY, 3 YEARS)
     Route: 065
  10. IRON [Concomitant]
     Active Substance: IRON
     Indication: Mineral supplementation
     Dosage: UNK, QD  (ONCE A DAY, 3 YEARS)
     Route: 065
  11. DOCONEXENT\MINERALS\VITAMINS [Concomitant]
     Active Substance: DOCONEXENT\MINERALS\VITAMINS
     Indication: Product used for unknown indication
     Dosage: UNK, QD (ONCE A DAY, 3 YEARS)
     Route: 065
  12. ASPIRIN [Concomitant]
     Active Substance: ASPIRIN
     Indication: Product used for unknown indication
     Dosage: UNK, QD (ONCE A DAY, 3 YEARS)
     Route: 065
  13. ARIMIDEX [Concomitant]
     Active Substance: ANASTROZOLE
     Indication: Breast cancer
     Dosage: UNK, SINCE 9 YEARS
     Route: 065

REACTIONS (7)
  - Thrombosis [Unknown]
  - Peripheral swelling [Unknown]
  - Back pain [Recovering/Resolving]
  - Pain in extremity [Recovering/Resolving]
  - Groin pain [Recovering/Resolving]
  - Arthralgia [Recovering/Resolving]
  - Labelled drug-drug interaction issue [Unknown]

NARRATIVE: CASE EVENT DATE: 20200101
